FAERS Safety Report 6546370-X (Version None)
Quarter: 2010Q1

REPORT INFORMATION
  Report Type: 
  Country: None (occurrence: None)
  Receive Date: 20100102
  Receipt Date: 20091231
  Transmission Date: 20100710
  Serious: No
  Sender: FDA-Public Use
  Company Number: 2009-00914

PATIENT
  Age: 28 Year
  Sex: Male
  Weight: 83.9154 kg

DRUGS (1)
  1. COLD REMEDY ORAL MIST [Suspect]
     Dosage: 3 DOSES - 3 DOSES
     Dates: start: 20091230, end: 20091231

REACTIONS (1)
  - AGEUSIA [None]
